FAERS Safety Report 18560416 (Version 4)
Quarter: 2023Q2

REPORT INFORMATION
  Report Type: Spontaneous
  Country: CN (occurrence: CN)
  Receive Date: 20201130
  Receipt Date: 20230623
  Transmission Date: 20230722
  Serious: Yes (Hospitalization, Other)
  Sender: FDA-Public Use
  Company Number: CN-PFIZER INC-2020464351

PATIENT
  Age: 51 Year
  Sex: Male

DRUGS (5)
  1. PREGABALIN [Interacting]
     Active Substance: PREGABALIN
     Indication: Analgesic therapy
     Dosage: 75 MG, 2X/DAY
     Route: 048
     Dates: start: 201906
  2. ACETAMINOPHEN\OXYCODONE HYDROCHLORIDE [Interacting]
     Active Substance: ACETAMINOPHEN\OXYCODONE HYDROCHLORIDE
     Indication: Analgesic therapy
     Dosage: 1 DOSAGE FORM, TID (THRICE DAILY BEFORE AND AFTER THE OPERATION)
     Route: 048
     Dates: start: 20190609
  3. OXYCODONE HYDROCHLORIDE [Interacting]
     Active Substance: OXYCODONE HYDROCHLORIDE
     Indication: Analgesic therapy
     Dosage: 10 MILLIGRAM, QD (FOR 2 DAYS)
     Route: 048
  4. DOCETAXEL [Suspect]
     Active Substance: DOCETAXEL
     Indication: Nasopharyngeal cancer
     Dosage: 120 MILLIGRAM, QD (DAY 1: WITH 21 DAYS AS 1 CYCLE; INTRAVENOUS DRIP, FOUR CYCLES)
     Route: 042
     Dates: start: 201702, end: 201705
  5. CISPLATIN [Suspect]
     Active Substance: CISPLATIN
     Indication: Nasopharyngeal cancer
     Dosage: 40 MILLIGRAM, QD (DAY 1-3: WITH 21 DAYS AS 1 CYCLE; INTRAVENOUS DRIP, FOUR CYCLES)
     Route: 042
     Dates: start: 201702, end: 201705

REACTIONS (10)
  - Mental disorder [Recovered/Resolved]
  - Disorientation [Recovered/Resolved]
  - Cognitive disorder [Recovered/Resolved]
  - Delirium [Recovered/Resolved]
  - Seizure [Recovered/Resolved]
  - Irritability [Recovered/Resolved]
  - Drug interaction [Recovered/Resolved]
  - Sinusitis [Unknown]
  - Otitis media [Unknown]
  - Off label use [Unknown]

NARRATIVE: CASE EVENT DATE: 20190601
